FAERS Safety Report 4340377-9 (Version None)
Quarter: 2004Q2

REPORT INFORMATION
  Report Type: 
  Country: None (occurrence: None)
  Receive Date: 20040414
  Receipt Date: 20040331
  Transmission Date: 20050107
  Serious: Yes (Hospitalization)
  Sender: FDA-Public Use
  Company Number: 01P-163-0185488-00

PATIENT
  Age: 76 Year
  Sex: Female
  Weight: 47.7 kg

DRUGS (15)
  1. HUMIRA [Suspect]
     Indication: RHEUMATOID ARTHRITIS
     Dosage: 40 MG, 1 IN 2 WK, SUBCUTANEOUS
     Route: 058
     Dates: start: 20001009, end: 20010717
  2. OMEPRAZOLE [Concomitant]
  3. MULTI-VITAMINS [Concomitant]
  4. LEVOTHYROXINE SODIUM [Concomitant]
  5. PILOCARPINE [Concomitant]
  6. ESTRADIOL [Concomitant]
  7. CALCIUM [Concomitant]
  8. METHYCELLULOSE [Concomitant]
  9. FAMOTIDINE [Concomitant]
  10. FLUOXETINE [Concomitant]
  11. RABEPRAZOLE SODIUM [Concomitant]
  12. METOCLOPRAMIDE [Concomitant]
  13. METHOTREXATE [Concomitant]
  14. FOLIC ACID [Concomitant]
  15. SALSALATE [Concomitant]

REACTIONS (5)
  - DYSPHAGIA [None]
  - IMPAIRED GASTRIC EMPTYING [None]
  - MALNUTRITION [None]
  - NAUSEA [None]
  - PANCREATIC CARCINOMA [None]
